FAERS Safety Report 10925424 (Version 1)
Quarter: 2015Q1

REPORT INFORMATION
  Report Type: Spontaneous
  Country: IN (occurrence: IN)
  Receive Date: 20150318
  Receipt Date: 20150318
  Transmission Date: 20150721
  Serious: Yes (Disabling, Other)
  Sender: FDA-Public Use
  Company Number: IN-AUROBINDO-AUR-APL-2015-02187

PATIENT
  Age: 26 Year
  Sex: Male

DRUGS (5)
  1. GABAPENTIN. [Suspect]
     Active Substance: GABAPENTIN
     Indication: DRUG DEPENDENCE
     Dosage: 2 G, DAILY
     Route: 065
  2. GABAPENTIN. [Suspect]
     Active Substance: GABAPENTIN
     Dosage: UNK, 10-12G/DAY
     Route: 065
  3. PROPOXYPHENE. [Concomitant]
     Active Substance: PROPOXYPHENE
     Indication: PRODUCT USED FOR UNKNOWN INDICATION
     Dosage: 200 MG, DAILY
     Route: 065
  4. GABAPENTIN. [Suspect]
     Active Substance: GABAPENTIN
     Indication: DRUG WITHDRAWAL SYNDROME
     Dosage: 400 MG, DAILY
     Route: 065
  5. PROPOXYPHENE. [Concomitant]
     Active Substance: PROPOXYPHENE
     Dosage: 2.5 G, DAILY
     Route: 065

REACTIONS (8)
  - Insomnia [Recovering/Resolving]
  - Depressed mood [Recovering/Resolving]
  - Agitation [Recovering/Resolving]
  - Irritability [Recovering/Resolving]
  - Activities of daily living impaired [Recovering/Resolving]
  - Dependence [Recovering/Resolving]
  - Drug withdrawal syndrome [Recovering/Resolving]
  - Coordination abnormal [Recovering/Resolving]
